FAERS Safety Report 10143208 (Version 2)
Quarter: 2014Q2

REPORT INFORMATION
  Report Type: Report from Study
  Country: US (occurrence: US)
  Receive Date: 20140430
  Receipt Date: 20140610
  Transmission Date: 20141212
  Serious: Yes (Other)
  Sender: FDA-Public Use
  Company Number: US-SA-2014SA053921

PATIENT
  Age: 82 Year
  Sex: Female

DRUGS (6)
  1. LANTUS [Suspect]
     Indication: TYPE 2 DIABETES MELLITUS
     Dosage: START DATE: MORE THAN 5 YEARS AGO
     Route: 065
  2. NOVOLOG [Concomitant]
     Indication: DIABETES MELLITUS
     Dosage: STARTED: BEFORE DEC-2012?DOSE: 10-20 UNITS
  3. AMARYL [Concomitant]
     Indication: HYPERTENSION
     Dosage: STARTED: BEFORE MARCH-2008
  4. LASIX [Concomitant]
     Indication: CARDIAC FAILURE CONGESTIVE
     Dosage: DOSE: 40?STARTED: BEFORE AUG-2011
  5. DIGOXIN [Concomitant]
     Indication: ATRIAL FLUTTER
     Dosage: STARTED: BEFORE AUG-2011
  6. SOTALOL [Concomitant]
     Indication: HYPERTENSION
     Dosage: STARTED: BEFORE AUG-2011

REACTIONS (2)
  - Dementia [Not Recovered/Not Resolved]
  - Diabetes mellitus [Not Recovered/Not Resolved]
